FAERS Safety Report 5427504-7 (Version None)
Quarter: 2007Q3

REPORT INFORMATION
  Report Type: 
  Country: None (occurrence: None)
  Receive Date: 20070828
  Receipt Date: 20070823
  Transmission Date: 20080115
  Serious: Yes (Death, Other)
  Sender: FDA-Public Use
  Company Number: US-PURDUE-USA_2007_0028227

PATIENT
  Age: 36 Month
  Sex: Female

DRUGS (1)
  1. OXYCODONE HCL [Suspect]
     Indication: ACCIDENTAL DRUG INTAKE BY CHILD
     Route: 048

REACTIONS (6)
  - ACCIDENTAL DRUG INTAKE BY CHILD [None]
  - BRAIN DEATH [None]
  - HEART RATE INCREASED [None]
  - PUPIL FIXED [None]
  - RESPIRATORY ARREST [None]
  - UNRESPONSIVE TO STIMULI [None]
